FAERS Safety Report 24041342 (Version 1)
Quarter: 2024Q3

REPORT INFORMATION
  Report Type: Spontaneous
  Country: US (occurrence: US)
  Receive Date: 20240702
  Receipt Date: 20240702
  Transmission Date: 20241017
  Serious: Yes (Other)
  Sender: TEVA
  Company Number: US-TEVA-VS-3214037

PATIENT
  Age: 13 Year
  Sex: Male

DRUGS (1)
  1. ZOLEDRONIC ACID [Suspect]
     Active Substance: ZOLEDRONIC ACID
     Indication: Osteogenesis imperfecta
     Dosage: ZOLEDRONATE 16?TIMES OVER 4?YEARS;  HE RECEIVED A TOTAL DOSE OF 64MG
     Route: 042

REACTIONS (3)
  - Osteopetrosis [Unknown]
  - Multiple fractures [Unknown]
  - Bone deformity [Unknown]
